FAERS Safety Report 5251520-1 (Version None)
Quarter: 2007Q1

REPORT INFORMATION
  Report Type: 
  Country: None (occurrence: None)
  Receive Date: 20070228
  Receipt Date: 20060608
  Transmission Date: 20070707
  Serious: No
  Sender: FDA-Public Use
  Company Number: US-GLAXOSMITHKLINE-A0606527A

PATIENT
  Age: 53 Year
  Sex: Female

DRUGS (3)
  1. LAMICTAL [Suspect]
     Indication: BIPOLAR DISORDER
     Dosage: 175MG TWICE PER DAY
     Route: 048
     Dates: start: 20060520, end: 20060522
  2. ABILIFY [Concomitant]
  3. INDERAL LA [Concomitant]

REACTIONS (3)
  - ACCIDENTAL OVERDOSE [None]
  - BALANCE DISORDER [None]
  - SEDATION [None]
